FAERS Safety Report 5674143-9 (Version None)
Quarter: 2008Q1

REPORT INFORMATION
  Report Type: 
  Country: None (occurrence: None)
  Receive Date: 20080320
  Receipt Date: 20080307
  Transmission Date: 20080703
  Serious: Yes (Hospitalization, Other)
  Sender: FDA-Public Use
  Company Number: DE-BRISTOL-MYERS SQUIBB COMPANY-14117899

PATIENT
  Age: 69 Year
  Sex: Male
  Weight: 64 kg

DRUGS (3)
  1. CETUXIMAB [Suspect]
     Indication: NON-SMALL CELL LUNG CANCER
     Dosage: INTERRUPTED ON 25JAN08 AND RE-INTRODUCED ON 01FEB08
     Route: 042
     Dates: start: 20071122
  2. CARBOPLATIN [Suspect]
     Indication: NON-SMALL CELL LUNG CANCER
     Dosage: INTERRUPTED ON 18JAN08 AND RE-INTRODUCED ON 01FEB08.
     Route: 042
     Dates: start: 20071122
  3. GEMCITABINE [Suspect]
     Indication: NON-SMALL CELL LUNG CANCER
     Dosage: INTERRUPTED ON 25JAN08 AND RE-INTRODUCED ON 01FEB08
     Route: 042
     Dates: start: 20071122

REACTIONS (2)
  - EPISTAXIS [None]
  - THROMBOCYTOPENIA [None]
